FAERS Safety Report 7944550-X (Version None)
Quarter: 2011Q4

REPORT INFORMATION
  Report Type: 
  Country: None (occurrence: None)
  Receive Date: 20111122
  Receipt Date: 20110801
  Transmission Date: 20120403
  Serious: Yes (Other)
  Sender: FDA-Public Use
  Company Number: PHHY2011US70102

PATIENT
  Age: 51 Year
  Sex: Female
  Weight: 90.7 kg

DRUGS (9)
  1. ATENOLOL [Concomitant]
  2. ONE A DAY (CYANOCOBALAMIN, ERGOCALCIFEROL, NICOTINAMIDE, PYRIDOXINE HY [Concomitant]
  3. LAMICTAL [Concomitant]
  4. ASAL (ARACGUS GTOIGAEA OIL, ARACHIS OIL, ASCORBIC ACID, GLYCERYL MONOS [Concomitant]
  5. BACLOFEN [Concomitant]
  6. GABAPENTIN [Concomitant]
  7. ALLEGRA [Concomitant]
  8. MUCINEX DM (DEXTROMETHORPHAN HYDROBROMIDE, GUAIFENESIN) [Concomitant]
  9. GILENYA [Suspect]
     Indication: MULTIPLE SCLEROSIS
     Dosage: 1 DF, QD, ORAL
     Route: 048

REACTIONS (2)
  - COUGH [None]
  - HERPES ZOSTER [None]
